FAERS Safety Report 6557843-8 (Version None)
Quarter: 2010Q1

REPORT INFORMATION
  Report Type: 
  Country: None (occurrence: None)
  Receive Date: 20100128
  Receipt Date: 20100128
  Transmission Date: 20100710
  Serious: Yes (Disabling)
  Sender: FDA-Public Use
  Company Number: None

PATIENT
  Age: 80 Year
  Sex: Female

DRUGS (12)
  1. ROCURONIUM BROMIDE [Suspect]
     Indication: NEUROMUSCULAR BLOCKADE REVERSAL
     Dosage: 200 MG; ONCE; IV
     Route: 042
     Dates: start: 20091120
  2. BRIDION (SUGAMMADEX /00000000/) [Suspect]
     Indication: NEUROMUSCULAR BLOCKING THERAPY
     Dates: start: 20091120
  3. NOLOTIL (METAMIZOLE MAGNESIUM) [Suspect]
  4. FENTANYL [Concomitant]
  5. MIDAZOLAM HCL [Concomitant]
  6. PROPOFOL [Concomitant]
  7. SEVOFLUORANE [Concomitant]
  8. ACTONEL [Concomitant]
  9. DOXIUM [Concomitant]
  10. FEMARA [Concomitant]
  11. TRANSTEC [Concomitant]
  12. ENALAPRIL MALEATE [Concomitant]

REACTIONS (2)
  - DERMATITIS ALLERGIC [None]
  - WHEEZING [None]
